FAERS Safety Report 5464088-1 (Version None)
Quarter: 2007Q3

REPORT INFORMATION
  Report Type: 
  Country: None (occurrence: None)
  Receive Date: 20070921
  Receipt Date: 20070912
  Transmission Date: 20080115
  Serious: Yes (Other)
  Sender: FDA-Public Use
  Company Number: US-ROCHE-517167

PATIENT
  Age: 65 Year
  Sex: Female

DRUGS (6)
  1. VALIUM [Suspect]
     Indication: ANXIETY
     Dosage: TOOK IT ^ON AND OFF^ FOR SIX PLUS YEARS.
     Route: 065
     Dates: start: 20010101
  2. OMEPRAZOLE [Suspect]
     Route: 065
     Dates: start: 20070901, end: 20070901
  3. PLAVIX [Concomitant]
     Dates: start: 20061126
  4. ATACAND [Concomitant]
     Dosage: 32/12.5, DOSAGE NOT SPECIFIED
     Dates: start: 20061126
  5. PROTONIX [Concomitant]
     Dates: start: 20070801
  6. VYTORIN [Concomitant]
     Dosage: 10/80; DOSAGE NOT SPECIFIED.
     Dates: start: 20061126

REACTIONS (4)
  - ANXIETY [None]
  - ASTHENIA [None]
  - MYOCARDIAL INFARCTION [None]
  - PARAESTHESIA ORAL [None]
